FAERS Safety Report 5795272-5 (Version None)
Quarter: 2008Q2

REPORT INFORMATION
  Report Type: 
  Country: None (occurrence: None)
  Receive Date: 20080601
  Receipt Date: 20080129
  Transmission Date: 20081010
  Serious: No
  Sender: FDA-Public Use
  Company Number: US200801006616

PATIENT
  Age: 60 Year
  Sex: Female
  Weight: 72.1 kg

DRUGS (10)
  1. BYETTA [Suspect]
     Dosage: 5 UG, 2/D, SUBCUTANEOUS : 10 UG, 2/D, SUBCUTANEOUS
     Route: 058
     Dates: start: 20071101, end: 20071130
  2. BYETTA [Suspect]
     Dosage: 5 UG, 2/D, SUBCUTANEOUS : 10 UG, 2/D, SUBCUTANEOUS
     Route: 058
     Dates: start: 20071201, end: 20071201
  3. BYETTA [Suspect]
     Dosage: 5 UG, 2/D, SUBCUTANEOUS : 10 UG, 2/D, SUBCUTANEOUS
     Route: 058
     Dates: start: 20071201
  4. FLU (INFLUENZA VACCINE) [Concomitant]
  5. METFORMIN HCL [Concomitant]
  6. GLUCOTROL XL [Concomitant]
  7. LISINOPRIL /USA/ (LISINOPRIL) [Concomitant]
  8. LIPITOR [Concomitant]
  9. ASPIRIN /USA/ (ACETYLSALICYLIC ACID) [Concomitant]
  10. CALCIUM (CALCIUM) [Concomitant]

REACTIONS (9)
  - DIARRHOEA [None]
  - DYSPEPSIA [None]
  - GASTROOESOPHAGEAL REFLUX DISEASE [None]
  - HEADACHE [None]
  - INSOMNIA [None]
  - NAUSEA [None]
  - PAIN [None]
  - TRIGGER FINGER [None]
  - VOMITING [None]
